FAERS Safety Report 22058189 (Version 5)
Quarter: 2023Q2

REPORT INFORMATION
  Report Type: Spontaneous
  Country: US (occurrence: US)
  Receive Date: 20230303
  Receipt Date: 20230613
  Transmission Date: 20230721
  Serious: No
  Sender: FDA-Public Use
  Company Number: US-BRISTOL-MYERS SQUIBB COMPANY-2023-030897

PATIENT
  Age: 81 Year
  Sex: Female
  Weight: 59.87 kg

DRUGS (3)
  1. REVLIMID [Suspect]
     Active Substance: LENALIDOMIDE
     Indication: Plasma cell myeloma
     Dosage: FREQUENCY: DAILY DAYS 1-21 EVERY 28 DAYS
     Route: 048
     Dates: start: 20230120
  2. REVLIMID [Suspect]
     Active Substance: LENALIDOMIDE
     Dosage: FREQ - DAILY X 21 DAYS ON AND 7 DAYS OFF
     Route: 048
     Dates: start: 20230120
  3. REVLIMID [Suspect]
     Active Substance: LENALIDOMIDE
     Dosage: FREQUENCY - DAILY 1- 21 DAYS ON AND 7 DAYS OFF
     Route: 048
     Dates: start: 20230302

REACTIONS (8)
  - Nausea [Not Recovered/Not Resolved]
  - Fatigue [Not Recovered/Not Resolved]
  - Urinary tract infection [Unknown]
  - Rash [Recovering/Resolving]
  - Laboratory test abnormal [Unknown]
  - Emergency care examination [Unknown]
  - Asthenia [Not Recovered/Not Resolved]
  - Pain [Not Recovered/Not Resolved]

NARRATIVE: CASE EVENT DATE: 20230215
